FAERS Safety Report 22212988 (Version 2)
Quarter: 2023Q2

REPORT INFORMATION
  Report Type: Spontaneous
  Country: US (occurrence: US)
  Receive Date: 20230414
  Receipt Date: 20230420
  Transmission Date: 20230722
  Serious: Yes (Hospitalization, Other)
  Sender: FDA-Public Use
  Company Number: US-JNJFOC-20230403548

PATIENT
  Sex: Female
  Weight: 106.69 kg

DRUGS (5)
  1. RISPERDAL [Suspect]
     Active Substance: RISPERIDONE
     Indication: Schizophrenia
     Dosage: IN THE MORNING
     Route: 048
     Dates: start: 2009
  2. RISPERDAL [Suspect]
     Active Substance: RISPERIDONE
     Dosage: AT NIGHT
     Route: 048
     Dates: start: 2009
  3. INVEGA SUSTENNA [Suspect]
     Active Substance: PALIPERIDONE PALMITATE
     Indication: Schizophrenia
     Route: 065
  4. INVEGA SUSTENNA [Suspect]
     Active Substance: PALIPERIDONE PALMITATE
     Route: 065
     Dates: start: 2016
  5. INVEGA SUSTENNA [Suspect]
     Active Substance: PALIPERIDONE PALMITATE

REACTIONS (19)
  - Gastric perforation [Unknown]
  - Hospitalisation [Unknown]
  - Obesity [Unknown]
  - Hernia [Not Recovered/Not Resolved]
  - Swelling [Unknown]
  - Swollen tongue [Unknown]
  - Swelling face [Unknown]
  - Alopecia [Unknown]
  - Joint stiffness [Unknown]
  - Peripheral swelling [Unknown]
  - Hypersomnia [Unknown]
  - Breast enlargement [Unknown]
  - Pain [Unknown]
  - Libido decreased [Unknown]
  - Vomiting [Unknown]
  - Musculoskeletal stiffness [Unknown]
  - Abdominal discomfort [Unknown]
  - Abdominal pain [Unknown]
  - Rash [Unknown]

NARRATIVE: CASE EVENT DATE: 20140101
